FAERS Safety Report 5745254-4 (Version None)
Quarter: 2008Q2

REPORT INFORMATION
  Report Type: 
  Country: None (occurrence: None)
  Receive Date: 20080521
  Receipt Date: 20080519
  Transmission Date: 20081010
  Serious: Yes (Life-Threatening)
  Sender: FDA-Public Use
  Company Number: D0057357A

PATIENT
  Age: 69 Year
  Sex: Female
  Weight: 68 kg

DRUGS (1)
  1. ZANTAC [Suspect]
     Indication: SKIN TEST
     Dosage: 1DROP SINGLE DOSE
     Route: 061
     Dates: start: 20071219, end: 20071219

REACTIONS (5)
  - CARDIOVASCULAR DISORDER [None]
  - HEART RATE IRREGULAR [None]
  - PULSE PRESSURE DECREASED [None]
  - SKIN TEST POSITIVE [None]
  - TREMOR [None]
